FAERS Safety Report 4697293-2 (Version None)
Quarter: 2005Q2

REPORT INFORMATION
  Report Type: 
  Country: None (occurrence: None)
  Receive Date: 20050622
  Receipt Date: 20050615
  Transmission Date: 20051028
  Serious: Yes (Other)
  Sender: FDA-Public Use
  Company Number: 2005CG01120

PATIENT
  Age: 7 Year
  Sex: Female

DRUGS (4)
  1. OMEPRAZOLE [Suspect]
     Indication: GASTROOESOPHAGEAL REFLUX DISEASE
     Route: 048
     Dates: start: 20050601, end: 20050614
  2. OMEPRAZOLE [Suspect]
     Indication: OESOPHAGITIS
     Route: 048
     Dates: start: 20050601, end: 20050614
  3. PRIMPERAN INJ [Concomitant]
     Indication: GASTROOESOPHAGEAL REFLUX DISEASE
     Route: 048
     Dates: start: 20050601
  4. PRIMPERAN INJ [Concomitant]
     Indication: OESOPHAGITIS
     Route: 048
     Dates: start: 20050601

REACTIONS (1)
  - MIGRAINE [None]
